FAERS Safety Report 6811058-4 (Version None)
Quarter: 2010Q2

REPORT INFORMATION
  Report Type: 
  Country: None (occurrence: None)
  Receive Date: 20100630
  Receipt Date: 20081117
  Transmission Date: 20101027
  Serious: No
  Sender: FDA-Public Use
  Company Number: US-PFIZER INC-2008099818

PATIENT

DRUGS (1)
  1. ESTRING [Suspect]

REACTIONS (1)
  - VAGINAL INFECTION [None]
